FAERS Safety Report 22750534 (Version 6)
Quarter: 2023Q4

REPORT INFORMATION
  Report Type: Report from Study
  Country: CZ (occurrence: CZ)
  Receive Date: 20230726
  Receipt Date: 20231024
  Transmission Date: 20240109
  Serious: Yes (Hospitalization, Disabling)
  Sender: FDA-Public Use
  Company Number: CZ-GENMAB-2023-01269

PATIENT
  Age: 87 Year
  Sex: Male
  Weight: 80 kg

DRUGS (41)
  1. EPCORITAMAB [Suspect]
     Active Substance: EPCORITAMAB
     Indication: Diffuse large B-cell lymphoma stage II
     Dosage: C1D1
     Route: 058
     Dates: start: 20230606, end: 20230606
  2. EPCORITAMAB [Suspect]
     Active Substance: EPCORITAMAB
     Dosage: C1D8
     Route: 058
     Dates: start: 20230613, end: 20230613
  3. EPCORITAMAB [Suspect]
     Active Substance: EPCORITAMAB
     Dosage: C1D15-C2D8
     Route: 058
     Dates: start: 20230620, end: 20230711
  4. LENALIDOMIDE [Suspect]
     Active Substance: LENALIDOMIDE
     Indication: Diffuse large B-cell lymphoma stage II
     Dosage: CYCLE 1
     Route: 048
     Dates: start: 20230606, end: 20230626
  5. LENALIDOMIDE [Suspect]
     Active Substance: LENALIDOMIDE
     Dosage: CYCLE 2
     Route: 048
     Dates: start: 20230704, end: 20230717
  6. BISULEPIN [Concomitant]
     Active Substance: BISULEPIN
     Indication: Premedication
     Dosage: 2 MILLIGRAM, SINGLE
     Route: 048
     Dates: start: 20230711, end: 20230711
  7. ACETAMINOPHEN [Concomitant]
     Active Substance: ACETAMINOPHEN
     Indication: Premedication
     Dosage: 1000 MILLIGRAM, SINGLE
     Route: 048
     Dates: start: 20230711, end: 20230711
  8. DEXAMETHASONE [Concomitant]
     Active Substance: DEXAMETHASONE
     Indication: Prophylaxis
     Dosage: 16 MILLIGRAM, SINGLE
     Route: 042
     Dates: start: 20230711, end: 20230711
  9. DEXAMETHASONE [Concomitant]
     Active Substance: DEXAMETHASONE
     Indication: Prophylaxis
     Dosage: 16 MILLIGRAM, QD
     Route: 048
     Dates: start: 20230712, end: 20230714
  10. FENOTEROL HYDROBROMIDE\IPRATROPIUM BROMIDE [Concomitant]
     Active Substance: FENOTEROL HYDROBROMIDE\IPRATROPIUM BROMIDE
     Indication: Respiratory tract congestion
     Dosage: 1 MILLILITER, SINGLE
     Dates: start: 20230708, end: 20230708
  11. FENOTEROL HYDROBROMIDE\IPRATROPIUM BROMIDE [Concomitant]
     Active Substance: FENOTEROL HYDROBROMIDE\IPRATROPIUM BROMIDE
     Dosage: 2 MILLILITER, INTERMITTENT
     Dates: start: 20230709, end: 20230710
  12. MELPERONE HYDROCHLORIDE [Concomitant]
     Active Substance: MELPERONE HYDROCHLORIDE
     Dosage: 25 MILLIGRAM, QD
     Route: 048
     Dates: start: 20230602
  13. CONTROLOC [Concomitant]
     Active Substance: PANTOPRAZOLE SODIUM
     Indication: Prophylaxis
     Dosage: 40 MILLIGRAM, QD
     Route: 048
     Dates: start: 20230601
  14. DUPHALAC [Concomitant]
     Active Substance: LACTULOSE
     Indication: Constipation
     Dosage: 20 MILLILITER, PRN
     Route: 048
     Dates: start: 20230608
  15. DUPHALAC [Concomitant]
     Active Substance: LACTULOSE
     Indication: Prophylaxis
     Dosage: 20 MILLILITER, BID
     Route: 048
     Dates: start: 20230719, end: 20230719
  16. NADROPARIN CALCIUM [Concomitant]
     Active Substance: NADROPARIN CALCIUM
     Indication: Prophylaxis
     Dosage: 9500 INTERNATIONAL UNIT, QD
     Route: 058
     Dates: start: 202205
  17. FUROSEMIDE [Concomitant]
     Active Substance: FUROSEMIDE
     Indication: Prophylaxis
     Dosage: 80 MILLIGRAM, SINGLE
     Route: 048
     Dates: start: 20230622, end: 20230622
  18. FUROSEMIDE [Concomitant]
     Active Substance: FUROSEMIDE
     Indication: Cytokine release syndrome
     Dosage: 20 MILLIGRAM, SINGLE
     Route: 042
     Dates: start: 20230621, end: 20230621
  19. FUROSEMIDE [Concomitant]
     Active Substance: FUROSEMIDE
     Indication: Prophylaxis
     Dosage: 20 MILLIGRAM, SINGLE
     Route: 042
     Dates: start: 20230708, end: 20230708
  20. POTASSIUM CHLORIDE [Concomitant]
     Active Substance: POTASSIUM CHLORIDE
     Indication: Prophylaxis
     Dosage: 1 GRAM, BID
     Route: 048
     Dates: start: 20230620, end: 20230623
  21. KCL [Concomitant]
     Active Substance: POTASSIUM CHLORIDE
     Indication: Prophylaxis
     Dosage: 40 MILLILITER, SINGLE (7.45 PERCENT)
     Route: 042
     Dates: start: 20230622, end: 20230622
  22. KCL [Concomitant]
     Active Substance: POTASSIUM CHLORIDE
     Dosage: 40 MILLILITER, INTERMITTENT (7.5 PERCENT)
     Route: 042
     Dates: start: 20230627, end: 20230707
  23. KCL [Concomitant]
     Active Substance: POTASSIUM CHLORIDE
     Dosage: 40 MILLILITER, QD (7.45 PERCENT)
     Route: 042
     Dates: start: 20230718, end: 20230719
  24. METAMIZOL [Concomitant]
     Active Substance: METAMIZOLE SODIUM
     Indication: Back pain
     Dosage: 500 MILLIGRAM, SINGLE
     Route: 048
     Dates: start: 20230708, end: 20230708
  25. ALLOPURINOL [Concomitant]
     Active Substance: ALLOPURINOL
     Dosage: 300 MILLIGRAM, QD
     Route: 048
     Dates: start: 20230530, end: 20230709
  26. ALLOPURINOL [Concomitant]
     Active Substance: ALLOPURINOL
     Dosage: 300 MILLIGRAM, QD
     Route: 048
     Dates: start: 20230711, end: 20230711
  27. MIRTAZAPINE [Concomitant]
     Active Substance: MIRTAZAPINE
     Dosage: 15 MILLIGRAM, QD
     Route: 048
     Dates: start: 202209
  28. ONDANSETRON [Concomitant]
     Active Substance: ONDANSETRON
     Indication: Prophylaxis
     Dosage: 8 MILLIGRAM, SINGLE
     Route: 042
     Dates: start: 20230621, end: 20230621
  29. SULPIRIDE [Concomitant]
     Active Substance: SULPIRIDE
     Dosage: 150 MILLIGRAM, QD
     Route: 048
     Dates: start: 202209
  30. TOCILIZUMAB [Concomitant]
     Active Substance: TOCILIZUMAB
     Indication: Cytokine release syndrome
     Dosage: 10 MILLIGRAM/KILOGRAM, SINGLE
     Route: 042
     Dates: start: 20230621, end: 20230621
  31. SODIUM CHLORIDE [Concomitant]
     Active Substance: SODIUM CHLORIDE
     Indication: Prophylaxis
     Dosage: 1000 MILLILITER, PRN
     Route: 042
     Dates: start: 20230619, end: 20230623
  32. SODIUM CHLORIDE [Concomitant]
     Active Substance: SODIUM CHLORIDE
     Dosage: 1000 MILLILITER, INTERMITTENT
     Route: 042
     Dates: start: 20230627, end: 20230711
  33. SODIUM CHLORIDE [Concomitant]
     Active Substance: SODIUM CHLORIDE
     Dosage: 1000 MILLILITER, INTERMITTENT
     Route: 042
     Dates: start: 20230718
  34. GLYCERIN [Concomitant]
     Active Substance: GLYCERIN
     Indication: Constipation
     Dosage: 1 SUPPOSITORY, SINGLE
     Route: 054
     Dates: start: 20230704, end: 20230704
  35. GLYCERIN [Concomitant]
     Active Substance: GLYCERIN
     Dosage: 2 SUPPOSITORY, BID
     Route: 054
     Dates: start: 20230705, end: 20230705
  36. VALACYCLOVIR HYDROCHLORIDE [Concomitant]
     Active Substance: VALACYCLOVIR HYDROCHLORIDE
     Indication: Prophylaxis
     Dosage: 500 MILLIGRAM, QD
     Route: 048
     Dates: start: 20230602
  37. MAGNESIUM LACTATE [Concomitant]
     Active Substance: MAGNESIUM LACTATE
     Indication: Prophylaxis
     Dosage: 0.5 MILLIGRAM, BID
     Route: 048
     Dates: start: 20230719
  38. SPIRONOLACTONE [Concomitant]
     Active Substance: SPIRONOLACTONE
     Indication: Prophylaxis
     Dosage: 25 MILLIGRAM, QD
     Route: 048
     Dates: start: 20230720
  39. ACETYLCYSTEINE [Concomitant]
     Active Substance: ACETYLCYSTEINE
     Indication: Prophylaxis
     Dosage: 100 MILLIGRAM, BID
     Route: 042
     Dates: start: 20230709, end: 20230710
  40. CARBOHYDRATES\FATTY ACIDS\MINERALS\PROTEIN\VITAMINS [Concomitant]
     Active Substance: CARBOHYDRATES\FATTY ACIDS\MINERALS\PROTEIN\VITAMINS
     Indication: Decreased appetite
     Dosage: 125 MILLILITER, PRN
     Route: 048
     Dates: start: 20230704, end: 20230705
  41. OXYGEN [Concomitant]
     Active Substance: OXYGEN
     Indication: Cytokine release syndrome
     Dosage: 4 DAYS, INTERMITTENT
     Route: 045
     Dates: start: 20230621, end: 20230624

REACTIONS (1)
  - Urinary tract infection [Recovered/Resolved]

NARRATIVE: CASE EVENT DATE: 20230718
